FAERS Safety Report 21264117 (Version 1)
Quarter: 2022Q3

REPORT INFORMATION
  Report Type: Spontaneous
  Country: US (occurrence: US)
  Receive Date: 20220829
  Receipt Date: 20220829
  Transmission Date: 20221026
  Serious: No
  Sender: FDA-Public Use
  Company Number: US-AUROBINDO-AUR-APL-2022-022917

PATIENT
  Age: 83 Year
  Sex: Male

DRUGS (2)
  1. AZELASTINE HYDROCHLORIDE [Suspect]
     Active Substance: AZELASTINE HYDROCHLORIDE
     Indication: Hypersensitivity
     Dosage: 1 DOSAGE FORM, TWO TIMES A DAY
     Route: 045
  2. AUGMENTIN [Concomitant]
     Active Substance: AMOXICILLIN\CLAVULANATE POTASSIUM
     Indication: Product used for unknown indication
     Dosage: 500 MILLIGRAM, TWO TIMES A DAY
     Route: 065

REACTIONS (2)
  - Device issue [Unknown]
  - Product dose omission issue [Unknown]

NARRATIVE: CASE EVENT DATE: 20220614
